FAERS Safety Report 12520577 (Version 1)
Quarter: 2016Q2

REPORT INFORMATION
  Report Type: Spontaneous
  Country: US (occurrence: None)
  Receive Date: 20160630
  Receipt Date: 20160630
  Transmission Date: 20160815
  Serious: Yes (Other)
  Sender: FDA-Public Use
  Company Number: None

PATIENT
  Age: 56 Year
  Sex: Female
  Weight: 62.14 kg

DRUGS (13)
  1. VITAMIN D [Concomitant]
     Active Substance: CHOLECALCIFEROL
  2. TURMERIC [Concomitant]
     Active Substance: TURMERIC
  3. MAGNESIUM [Concomitant]
     Active Substance: MAGNESIUM
  4. VITAMIN B12 [Concomitant]
     Active Substance: CYANOCOBALAMIN
  5. BIOTIN [Concomitant]
     Active Substance: BIOTIN
  6. AMBIEN [Concomitant]
     Active Substance: ZOLPIDEM TARTRATE
  7. MSM [Concomitant]
     Active Substance: DIMETHYL SULFONE
  8. BUPROPION. [Concomitant]
     Active Substance: BUPROPION
  9. ADVAIR DISCUS [Concomitant]
  10. PROAIR HFA [Concomitant]
     Active Substance: ALBUTEROL SULFATE
  11. MELATONIN [Concomitant]
     Active Substance: MELATONIN
  12. ZETIA [Suspect]
     Active Substance: EZETIMIBE
     Indication: BLOOD CHOLESTEROL INCREASED
     Dosage: 2 TABLET(S) AT BEDTIME TAKEN BY MOUTH
     Route: 048
     Dates: start: 20160627, end: 20160629
  13. HYDROCODONE [Concomitant]
     Active Substance: HYDROCODONE

REACTIONS (11)
  - Pain in extremity [None]
  - Balance disorder [None]
  - Musculoskeletal pain [None]
  - Hypoaesthesia [None]
  - Paraesthesia [None]
  - Arthralgia [None]
  - Headache [None]
  - Muscular weakness [None]
  - Back pain [None]
  - Dizziness [None]
  - Chest pain [None]

NARRATIVE: CASE EVENT DATE: 20160629
